FAERS Safety Report 9503642 (Version 1)
Quarter: 2013Q3

REPORT INFORMATION
  Report Type: Spontaneous
  Country: US (occurrence: US)
  Receive Date: 20130906
  Receipt Date: 20130906
  Transmission Date: 20140515
  Serious: Yes (Hospitalization)
  Sender: FDA-Public Use
  Company Number: PHHY2013US095517

PATIENT
  Age: 50 Year
  Sex: Male

DRUGS (5)
  1. CEFAZOLIN [Suspect]
     Indication: ANTIBIOTIC PROPHYLAXIS
     Dosage: 2 G, UNK
     Route: 042
  2. ROCURONIUM BROMIDE [Suspect]
     Indication: MUSCLE RELAXANT THERAPY
     Dosage: 50 MG, UNK
  3. PROPOFOL [Suspect]
     Indication: ANAESTHESIA
     Dosage: 200 MG, UNK
  4. FENTANYL [Concomitant]
     Indication: ANAESTHESIA
     Route: 042
  5. DESFLURANE [Concomitant]
     Indication: ANAESTHESIA

REACTIONS (8)
  - Propofol infusion syndrome [Recovering/Resolving]
  - Metabolic acidosis [Recovering/Resolving]
  - Anaphylactic shock [Recovering/Resolving]
  - Circulatory collapse [Recovering/Resolving]
  - Angioedema [Recovering/Resolving]
  - Swelling [Recovering/Resolving]
  - Generalised erythema [Recovering/Resolving]
  - Sinus tachycardia [Unknown]
